FAERS Safety Report 25189728 (Version 2)
Quarter: 2025Q2

REPORT INFORMATION
  Report Type: Other
  Country: CA (occurrence: CA)
  Receive Date: 20250411
  Receipt Date: 20250507
  Transmission Date: 20250716
  Serious: Yes (Death, Hospitalization, Other)
  Sender: APOTEX
  Company Number: CA-APOTEX-2025AP004804

PATIENT
  Age: 81 Year
  Sex: Male

DRUGS (1)
  1. POMALIDOMIDE [Suspect]
     Active Substance: POMALIDOMIDE
     Indication: Plasma cell myeloma
     Route: 065
     Dates: start: 20250314, end: 20250318

REACTIONS (3)
  - Acute kidney injury [Fatal]
  - Influenza A virus test positive [Fatal]
  - Dehydration [Fatal]

NARRATIVE: CASE EVENT DATE: 20250317
